FAERS Safety Report 18544520 (Version 1)
Quarter: 2020Q4

REPORT INFORMATION
  Report Type: Spontaneous
  Country: US (occurrence: US)
  Receive Date: 20201125
  Receipt Date: 20201125
  Transmission Date: 20210114
  Serious: No
  Sender: FDA-Public Use
  Company Number: US-BAYER-2020-256442

PATIENT
  Sex: Female

DRUGS (1)
  1. MIRENA [Suspect]
     Active Substance: LEVONORGESTREL
     Dosage: 20 ?G PER DAY CONTINUOUSLY
     Route: 015
     Dates: start: 20201124

REACTIONS (3)
  - Procedural vomiting [Not Recovered/Not Resolved]
  - Procedural pain [Not Recovered/Not Resolved]
  - Procedural nausea [Not Recovered/Not Resolved]

NARRATIVE: CASE EVENT DATE: 20201124
